FAERS Safety Report 9768149 (Version 2)
Quarter: 2013Q4

REPORT INFORMATION
  Report Type: Spontaneous
  Country: FR (occurrence: FR)
  Receive Date: 20131217
  Receipt Date: 20131223
  Transmission Date: 20140711
  Serious: Yes (Other)
  Sender: FDA-Public Use
  Company Number: FR-BAXTER-2013BAX049686

PATIENT
  Age: 65 Year
  Sex: Male

DRUGS (2)
  1. KIOVIG, 100 MG/ML, SOLUTION POUR PERFUSION [Suspect]
     Indication: OFF LABEL USE
     Route: 042
  2. KIOVIG, 100 MG/ML, SOLUTION POUR PERFUSION [Suspect]
     Indication: MILLER FISHER SYNDROME

REACTIONS (3)
  - Visual acuity reduced [Recovered/Resolved]
  - Diplopia [Recovered/Resolved]
  - Ophthalmoplegia [Recovered/Resolved]
